FAERS Safety Report 10109852 (Version 1)
Quarter: 2014Q2

REPORT INFORMATION
  Report Type: Spontaneous
  Country: US (occurrence: US)
  Receive Date: 20140425
  Receipt Date: 20140425
  Transmission Date: 20141212
  Serious: Yes (Other)
  Sender: FDA-Public Use
  Company Number: US-ASTRAZENECA-2014SE27150

PATIENT
  Age: 71 Year
  Sex: Male
  Weight: 75.8 kg

DRUGS (4)
  1. NEXIUM [Suspect]
     Indication: GASTROOESOPHAGEAL REFLUX DISEASE
     Route: 048
  2. UNSPECIFIED CALCIUM CHANNEL BLOCKER [Concomitant]
     Indication: BLOOD PRESSURE
     Dosage: DAILY
     Route: 048
  3. BABY ASPIRIN [Concomitant]
     Route: 048
  4. OSTEOBIFLEX [Concomitant]
     Indication: MUSCLE DISORDER
     Dosage: DAILY
     Route: 048

REACTIONS (6)
  - Coronary artery occlusion [Unknown]
  - Arteriosclerosis coronary artery [Unknown]
  - Blood pressure fluctuation [Unknown]
  - Dyspnoea [Unknown]
  - Muscle disorder [Unknown]
  - Intentional product misuse [Unknown]
